FAERS Safety Report 13919542 (Version 2)
Quarter: 2017Q3

REPORT INFORMATION
  Report Type: Report from Study
  Country: US (occurrence: US)
  Receive Date: 20170830
  Receipt Date: 20170905
  Transmission Date: 20171127
  Serious: No
  Sender: FDA-Public Use
  Company Number: US-AMGEN-USASL2017129361

PATIENT
  Age: 57 Year
  Sex: Female

DRUGS (1)
  1. ENBREL [Suspect]
     Active Substance: ETANERCEPT
     Indication: RHEUMATOID ARTHRITIS
     Dosage: 50 MG, QWK
     Route: 065
     Dates: start: 20170822

REACTIONS (6)
  - Nausea [Unknown]
  - Pyrexia [Recovered/Resolved]
  - Feeling abnormal [Unknown]
  - Injection site pain [Unknown]
  - Injection site haemorrhage [Unknown]
  - Terminal insomnia [Unknown]

NARRATIVE: CASE EVENT DATE: 20170822
